FAERS Safety Report 26202702 (Version 1)
Quarter: 2025Q4

REPORT INFORMATION
  Report Type: Report from Study
  Country: CA (occurrence: None)
  Receive Date: 20251226
  Receipt Date: 20251226
  Transmission Date: 20260118
  Serious: Yes (Hospitalization)
  Sender: CHIESI
  Company Number: CA-CHIESI-2025CHF09263

PATIENT
  Age: 84 Year
  Sex: Male
  Weight: 69.4 kg

DRUGS (2)
  1. DEFERIPRONE [Suspect]
     Active Substance: DEFERIPRONE
     Indication: Haemosiderosis
     Dosage: UNK, BID
     Route: 061
     Dates: start: 20240706
  2. DEFERIPRONE [Suspect]
     Active Substance: DEFERIPRONE
     Indication: Off label use

REACTIONS (4)
  - Fall [Unknown]
  - Pneumonia [Unknown]
  - Off label use [Not Recovered/Not Resolved]
  - Off label use [Not Recovered/Not Resolved]

NARRATIVE: CASE EVENT DATE: 20251110
